FAERS Safety Report 4501839-4 (Version None)
Quarter: 2004Q4

REPORT INFORMATION
  Report Type: 
  Country: None (occurrence: None)
  Receive Date: 20041115
  Receipt Date: 20041115
  Transmission Date: 20050328
  Serious: Yes (Hospitalization)
  Sender: FDA-Public Use
  Company Number: None

PATIENT
  Age: 54 Year
  Weight: 76.4 kg

DRUGS (34)
  1. WARFARIN SODIUM [Suspect]
  2. GLYBURIDE [Concomitant]
  3. ALBUTEROL ORAL INHALER [Concomitant]
  4. FUROSEMIDE [Concomitant]
  5. SPIRINOLACTONE [Concomitant]
  6. LISINOPRIL [Concomitant]
  7. ONE TOUCH ULTRA TEST STRIPS [Concomitant]
  8. LEVETIRACETAM [Concomitant]
  9. VALPROIC ACID [Concomitant]
  10. LEVOTHYROXINE SODIUM [Concomitant]
  11. RANITIDINE [Concomitant]
  12. VALACYCLOVIR HCL [Concomitant]
  13. ENOXAPARIN [Concomitant]
  14. BUPROPION (WELLBUTRIN SR) [Concomitant]
  15. TRAZODONE HCL [Concomitant]
  16. METOPROLOL SUCCINATE [Concomitant]
  17. SIMVASTATIN [Concomitant]
  18. BACTRIM DS [Concomitant]
  19. STERILE GAUZE PADS 4X4 [Concomitant]
  20. HYDROCORTISONE CREAM [Concomitant]
  21. TUCKS PADS [Concomitant]
  22. LUBRIDERM LOTION [Concomitant]
  23. LANCETS [Concomitant]
  24. HYDROCOR/PRAMOXINE 1% RECTAL FOAM [Concomitant]
  25. GLOVE NON-LATEX LARGE NONSTERILE [Concomitant]
  26. FLUNISOLIDE [Concomitant]
  27. CLOTRIMAZOLE 1% CREAM [Concomitant]
  28. CAPSAICIN 0.025% [Concomitant]
  29. AMMONIUM LACTATE LOTION [Concomitant]
  30. ACETAMINOPHEN W/ CODEINE [Concomitant]
  31. METOPROLOL SUCCINATE [Concomitant]
  32. HYDROCOR/PRAMOXINE 1% RECTAL FOAM [Concomitant]
  33. FLUNISOLIDE 0.25% NASAL SOLN [Concomitant]
  34. INFLUENZA VIRUS VACCINE [Concomitant]

REACTIONS (1)
  - INTERNATIONAL NORMALISED RATIO INCREASED [None]
